FAERS Safety Report 13307730 (Version 1)
Quarter: 2017Q1

REPORT INFORMATION
  Report Type: Report from Study
  Country: US (occurrence: US)
  Receive Date: 20170308
  Receipt Date: 20170308
  Transmission Date: 20170428
  Serious: Yes (Hospitalization, Other)
  Sender: FDA-Public Use
  Company Number: US-ACTELION-A-US2017-150830

PATIENT
  Age: 45 Year
  Sex: Female

DRUGS (12)
  1. VENOFER [Concomitant]
     Active Substance: IRON SUCROSE
  2. OPSUMIT [Suspect]
     Active Substance: MACITENTAN
     Indication: PULMONARY ARTERIAL HYPERTENSION
     Dosage: 10 MG, QD
     Route: 048
     Dates: start: 20160712
  3. METOPROLOL SUCCINATE. [Concomitant]
     Active Substance: METOPROLOL SUCCINATE
  4. ARANESP [Concomitant]
     Active Substance: DARBEPOETIN ALFA
  5. SENSIPAR [Concomitant]
     Active Substance: CINACALCET HYDROCHLORIDE
  6. LEVOTHYROXINE. [Concomitant]
     Active Substance: LEVOTHYROXINE
  7. RENVELA [Concomitant]
     Active Substance: SEVELAMER CARBONATE
  8. CABERGOLINE. [Concomitant]
     Active Substance: CABERGOLINE
  9. COUMADIN [Concomitant]
     Active Substance: WARFARIN SODIUM
  10. ZEMPLAR [Concomitant]
     Active Substance: PARICALCITOL
  11. PRILOSEC [Concomitant]
     Active Substance: OMEPRAZOLE MAGNESIUM
  12. KEPPRA [Concomitant]
     Active Substance: LEVETIRACETAM

REACTIONS (2)
  - Dialysis [Unknown]
  - Fluid retention [Unknown]

NARRATIVE: CASE EVENT DATE: 20170301
